FAERS Safety Report 14837537 (Version 2)
Quarter: 2018Q2

REPORT INFORMATION
  Report Type: Report from Study
  Country: CA (occurrence: CA)
  Receive Date: 20180502
  Receipt Date: 20180524
  Transmission Date: 20180711
  Serious: Yes (Other)
  Sender: FDA-Public Use
  Company Number: CA-JNJFOC-20180431934

PATIENT
  Age: 15 Year
  Sex: Male
  Weight: 48 kg

DRUGS (3)
  1. REMICADE [Suspect]
     Active Substance: INFLIXIMAB
     Indication: CROHN^S DISEASE
     Route: 042
  2. REMICADE [Suspect]
     Active Substance: INFLIXIMAB
     Indication: CROHN^S DISEASE
     Dosage: STRENGTH = 100 MG
     Route: 042
     Dates: start: 20161219
  3. METHOTREXATE. [Concomitant]
     Active Substance: METHOTREXATE
     Dosage: 4 TABLETS ONCE WEEK
     Route: 048

REACTIONS (6)
  - Product use issue [Unknown]
  - Localised infection [Unknown]
  - Crohn^s disease [Unknown]
  - Off label use [Unknown]
  - Impetigo [Recovered/Resolved]
  - Onychomadesis [Unknown]

NARRATIVE: CASE EVENT DATE: 20180401
